FAERS Safety Report 26187781 (Version 1)
Quarter: 2025Q4

REPORT INFORMATION
  Report Type: Spontaneous
  Country: US (occurrence: US)
  Receive Date: 20251222
  Receipt Date: 20251222
  Transmission Date: 20260117
  Serious: Yes (Other)
  Sender: NOVO NORDISK
  Company Number: US-NOVOPROD-1586582

PATIENT
  Age: 71 Year
  Sex: Female

DRUGS (7)
  1. NOVOLOG [Suspect]
     Active Substance: INSULIN ASPART
     Indication: Type 2 diabetes mellitus
     Dosage: BETWEEN 5-10 UNITS TID
  2. NOVOLOG [Suspect]
     Active Substance: INSULIN ASPART
     Dosage: BETWEEN 5-10 UNITS TID
  3. NOVOLOG [Suspect]
     Active Substance: INSULIN ASPART
     Dosage: BETWEEN 5-10 UNITS TID
  4. NOVOLOG [Suspect]
     Active Substance: INSULIN ASPART
     Dosage: BETWEEN 5-10 UNITS TID
  5. NOVOLOG [Suspect]
     Active Substance: INSULIN ASPART
     Indication: Type 2 diabetes mellitus
     Dosage: BETWEEN 5-10 UNITS TID
  6. NOVOLOG [Suspect]
     Active Substance: INSULIN ASPART
     Indication: Type 2 diabetes mellitus
     Dosage: BETWEEN 5-10 UNITS TID
  7. INSULIN NOS [Suspect]
     Active Substance: INSULIN NOS
     Indication: Type 2 diabetes mellitus
     Dosage: UNK

REACTIONS (4)
  - Glaucoma [Not Recovered/Not Resolved]
  - Visual impairment [Not Recovered/Not Resolved]
  - Photophobia [Unknown]
  - Memory impairment [Not Recovered/Not Resolved]

NARRATIVE: CASE EVENT DATE: 20200101
